FAERS Safety Report 8935352 (Version 1)
Quarter: 2012Q4

REPORT INFORMATION
  Report Type: Spontaneous
  Country: US (occurrence: None)
  Receive Date: 20121127
  Receipt Date: 20121127
  Transmission Date: 20130627
  Serious: Yes (Other)
  Sender: FDA-Public Use
  Company Number: None

PATIENT
  Age: 34 Year
  Sex: Female
  Weight: 45.36 kg

DRUGS (4)
  1. CLONAZEPAM [Suspect]
     Indication: ANXIETY
     Dosage: 2 mg PRN 3 times po
     Route: 048
     Dates: start: 20120901, end: 20121125
  2. CLONAZEPAM [Suspect]
     Indication: PANIC DISORDER
     Dosage: 2 mg PRN 3 times po
     Route: 048
     Dates: start: 20120901, end: 20121125
  3. CLONAZEPAM [Suspect]
     Indication: ANXIETY
  4. CLONAZEPAM [Suspect]
     Indication: PANIC DISORDER

REACTIONS (4)
  - Drug ineffective [None]
  - Headache [None]
  - Product quality issue [None]
  - Product substitution issue [None]
